FAERS Safety Report 8230098-4 (Version None)
Quarter: 2012Q1

REPORT INFORMATION
  Report Type: 
  Country: None (occurrence: None)
  Receive Date: 20120323
  Receipt Date: 20120319
  Transmission Date: 20120608
  Serious: No
  Sender: FDA-Public Use
  Company Number: US-PFIZER INC-2012072453

PATIENT
  Sex: Female

DRUGS (2)
  1. MISOPROSTOL [Suspect]
     Indication: UTERINE HYPERTONUS
  2. MISOPROSTOL [Suspect]
     Indication: THROMBOSIS PROPHYLAXIS
     Dosage: UNK

REACTIONS (2)
  - MUSCLE SPASMS [None]
  - DRUG INEFFECTIVE FOR UNAPPROVED INDICATION [None]
